FAERS Safety Report 4665006-6 (Version None)
Quarter: 2005Q2

REPORT INFORMATION
  Report Type: 
  Country: None (occurrence: None)
  Receive Date: 20050518
  Receipt Date: 20050518
  Transmission Date: 20051028
  Serious: Yes (Hospitalization)
  Sender: FDA-Public Use
  Company Number: None

PATIENT
  Sex: Female
  Weight: 78.0187 kg

DRUGS (1)
  1. XOLAIR [Suspect]

REACTIONS (4)
  - AXILLARY VEIN THROMBOSIS [None]
  - CATHETER RELATED COMPLICATION [None]
  - PHLEBITIS SUPERFICIAL [None]
  - SUBCLAVIAN VEIN THROMBOSIS [None]
